FAERS Safety Report 17559152 (Version 1)
Quarter: 2020Q1

REPORT INFORMATION
  Report Type: Spontaneous
  Country: ES (occurrence: ES)
  Receive Date: 20200319
  Receipt Date: 20200319
  Transmission Date: 20200409
  Serious: Yes (Other)
  Sender: FDA-Public Use
  Company Number: ES-ROCHE-2568279

PATIENT
  Age: 42 Year
  Sex: Female

DRUGS (2)
  1. OCREVUS [Suspect]
     Active Substance: OCRELIZUMAB
     Indication: MULTIPLE SCLEROSIS
     Dosage: 2ND DOSE
     Route: 042
     Dates: start: 20191107, end: 201911
  2. OCREVUS [Suspect]
     Active Substance: OCRELIZUMAB
     Dosage: 1ST DOSE
     Route: 042
     Dates: start: 20191024, end: 20191024

REACTIONS (1)
  - Colitis [Recovered/Resolved]

NARRATIVE: CASE EVENT DATE: 201911
